FAERS Safety Report 20501658 (Version 1)
Quarter: 2022Q1

REPORT INFORMATION
  Report Type: Spontaneous
  Country: US (occurrence: US)
  Receive Date: 20220222
  Receipt Date: 20220222
  Transmission Date: 20220424
  Serious: Yes (Other)
  Sender: FDA-Public Use
  Company Number: US-TAKEDA-2022TUS010913

PATIENT
  Age: 61 Year
  Sex: Female
  Weight: 77 kg

DRUGS (2)
  1. VELCADE [Suspect]
     Active Substance: BORTEZOMIB
     Indication: Product used for unknown indication
     Dosage: 1.3 MILLIGRAM
     Route: 065
     Dates: start: 202107, end: 202111
  2. VELCADE [Suspect]
     Active Substance: BORTEZOMIB
     Dosage: UNK, 2/WEEK
     Route: 065

REACTIONS (3)
  - Intracranial aneurysm [Unknown]
  - Hordeolum [Unknown]
  - Blepharitis [Unknown]

NARRATIVE: CASE EVENT DATE: 20211101
